FAERS Safety Report 14066309 (Version 1)
Quarter: 2017Q4

REPORT INFORMATION
  Report Type: Spontaneous
  Country: GB (occurrence: GB)
  Receive Date: 20171010
  Receipt Date: 20171010
  Transmission Date: 20180321
  Serious: Yes (Other)
  Sender: FDA-Public Use
  Company Number: GB-SUN PHARMACEUTICAL INDUSTRIES LTD-2017RR-151674

PATIENT
  Age: 45 Year
  Sex: Female

DRUGS (9)
  1. CYCLIZINE [Concomitant]
     Active Substance: CYCLIZINE
     Indication: PRODUCT USED FOR UNKNOWN INDICATION
     Dosage: UNKNOWN
     Route: 065
  2. OMEPRAZOLE. [Concomitant]
     Active Substance: OMEPRAZOLE
     Indication: PRODUCT USED FOR UNKNOWN INDICATION
     Dosage: UNKNOWN
     Route: 065
  3. SERTRALINE [Suspect]
     Active Substance: SERTRALINE HYDROCHLORIDE
     Indication: PRODUCT USED FOR UNKNOWN INDICATION
     Dosage: UNKNOWN
     Route: 065
  4. PECFENT [Suspect]
     Active Substance: FENTANYL CITRATE
     Indication: PRODUCT USED FOR UNKNOWN INDICATION
     Dosage: 6200 UG DOSE/ DAY
     Route: 045
  5. EPILIM [Concomitant]
     Active Substance: VALPROATE SODIUM
     Indication: PRODUCT USED FOR UNKNOWN INDICATION
     Dosage: UNKNOWN
     Route: 065
  6. TEGRETOL [Concomitant]
     Active Substance: CARBAMAZEPINE
     Indication: PRODUCT USED FOR UNKNOWN INDICATION
     Dosage: UNKNOWN
     Route: 065
  7. PECFENT [Suspect]
     Active Substance: FENTANYL CITRATE
     Dosage: UNKNOWN
     Route: 045
     Dates: start: 2013
  8. PECFENT [Suspect]
     Active Substance: FENTANYL CITRATE
     Dosage: UNKNOWN
     Route: 001
  9. PECFENT [Suspect]
     Active Substance: FENTANYL CITRATE
     Dosage: 32 SPRAYS FROM A 8 SPRAY BOTTLE; 4 BOTTLES OF PECFENT A DAY
     Route: 045

REACTIONS (11)
  - Cerebrovascular accident [Unknown]
  - Skin mass [Unknown]
  - Drug dependence [Unknown]
  - Product use in unapproved indication [Unknown]
  - Incorrect route of drug administration [Unknown]
  - Drug abuse [Unknown]
  - Overdose [Unknown]
  - Feeling abnormal [Unknown]
  - Weight decreased [Unknown]
  - Pain [Unknown]
  - Drug prescribing error [Unknown]
